FAERS Safety Report 8729667 (Version 2)
Quarter: 2013Q1

REPORT INFORMATION
  Report Type: Spontaneous
  Country: US (occurrence: US)
  Receive Date: 20120817
  Receipt Date: 20130111
  Transmission Date: 20140127
  Serious: Yes (Hospitalization, Other)
  Sender: FDA-Public Use
  Company Number: US-ROCHE-1072046

PATIENT
  Sex: Female

DRUGS (10)
  1. PEGASYS [Suspect]
     Indication: CHRONIC HEPATITIS C
     Route: 058
     Dates: start: 20120516
  2. PEGASYS [Suspect]
     Route: 058
  3. PEGASYS [Suspect]
     Route: 058
  4. PEGASYS [Suspect]
     Route: 058
  5. RIBAVIRIN [Suspect]
     Indication: CHRONIC HEPATITIS C
     Dosage: DIVIDED DOSES AT BEDTIME.
     Route: 048
     Dates: start: 20120516
  6. TELAPREVIR [Suspect]
     Indication: CHRONIC HEPATITIS C
     Route: 048
     Dates: start: 20120516
  7. DEPAKOTE [Concomitant]
  8. SEROQUEL [Concomitant]
  9. TRAZODONE [Concomitant]
  10. NEURONTIN [Concomitant]

REACTIONS (23)
  - Schizophrenia [Unknown]
  - Suicidal ideation [Unknown]
  - Hallucination [Unknown]
  - Homicidal ideation [Unknown]
  - Sinusitis [Unknown]
  - Intervertebral disc protrusion [Not Recovered/Not Resolved]
  - Chromaturia [Unknown]
  - Abdominal pain lower [Unknown]
  - Insomnia [Unknown]
  - Oral pain [Unknown]
  - White blood cell count decreased [Unknown]
  - Blister [Unknown]
  - Rash [Unknown]
  - Somnolence [Unknown]
  - Candida infection [Unknown]
  - Headache [Unknown]
  - Dizziness [Unknown]
  - Dizziness [Unknown]
  - Neck pain [Not Recovered/Not Resolved]
  - Back pain [Not Recovered/Not Resolved]
  - Hepatitis C [Unknown]
  - Malaise [Unknown]
  - Blood count abnormal [Unknown]
